FAERS Safety Report 15077217 (Version 3)
Quarter: 2018Q3

REPORT INFORMATION
  Report Type: Report from Study
  Country: US (occurrence: US)
  Receive Date: 20180627
  Receipt Date: 20180917
  Transmission Date: 20181010
  Serious: Yes (Hospitalization, Other)
  Sender: FDA-Public Use
  Company Number: US-ACTELION-A-US2018-173933

PATIENT
  Age: 33 Year
  Sex: Female

DRUGS (3)
  1. OPSUMIT [Suspect]
     Active Substance: MACITENTAN
     Indication: PULMONARY ARTERIAL HYPERTENSION
     Dosage: 10 MG, QD
     Route: 048
     Dates: start: 20180518
  2. OXYGEN. [Concomitant]
     Active Substance: OXYGEN
     Dosage: (BASELINE) NOCTURNAL
  3. OXYGEN. [Concomitant]
     Active Substance: OXYGEN
     Dosage: 3 L, AT HOME

REACTIONS (18)
  - Condition aggravated [Unknown]
  - Chest pain [Unknown]
  - Palpitations [Unknown]
  - Dyspnoea [Unknown]
  - Muscle spasms [Unknown]
  - Fluid overload [Recovering/Resolving]
  - Chest discomfort [Unknown]
  - Nausea [Recovering/Resolving]
  - Hospitalisation [Unknown]
  - Oropharyngeal pain [Recovered/Resolved]
  - Blood potassium decreased [Recovered/Resolved]
  - Hypokalaemia [Recovered/Resolved]
  - Vomiting [Unknown]
  - Migraine [Recovering/Resolving]
  - Pyrexia [Recovered/Resolved]
  - Oxygen saturation decreased [Recovering/Resolving]
  - Fatigue [Unknown]
  - Diarrhoea [Unknown]

NARRATIVE: CASE EVENT DATE: 2018
